FAERS Safety Report 21569548 (Version 3)
Quarter: 2022Q4

REPORT INFORMATION
  Report Type: Spontaneous
  Country: US (occurrence: US)
  Receive Date: 20221109
  Receipt Date: 20221114
  Transmission Date: 20230113
  Serious: No
  Sender: FDA-Public Use
  Company Number: US-002147023-NVSC2022US246700

PATIENT
  Sex: Female

DRUGS (1)
  1. KESIMPTA [Suspect]
     Active Substance: OFATUMUMAB
     Indication: Product used for unknown indication
     Dosage: (20MG / 0.4ML), QW
     Route: 065

REACTIONS (3)
  - Fear of injection [Unknown]
  - Accidental exposure to product [Unknown]
  - Device malfunction [Unknown]
